FAERS Safety Report 19407530 (Version 1)
Quarter: 2021Q2

REPORT INFORMATION
  Report Type: Report from Study
  Country: US (occurrence: US)
  Receive Date: 20210611
  Receipt Date: 20210611
  Transmission Date: 20210717
  Serious: Yes (Hospitalization)
  Sender: FDA-Public Use
  Company Number: US-BAYER-2021-152767

PATIENT
  Age: 68 Year
  Sex: Female

DRUGS (1)
  1. STIVARGA [Suspect]
     Active Substance: REGORAFENIB
     Dosage: DAILY DOSE 80 MG FOR 3 WEEKS ON ONE WEEK OFF
     Route: 048
     Dates: start: 20210319

REACTIONS (2)
  - Off label use [None]
  - Hospitalisation [Unknown]

NARRATIVE: CASE EVENT DATE: 20210319
